FAERS Safety Report 13021319 (Version 1)
Quarter: 2016Q4

REPORT INFORMATION
  Report Type: Spontaneous
  Country: US (occurrence: US)
  Receive Date: 20161213
  Receipt Date: 20161213
  Transmission Date: 20170207
  Serious: No
  Sender: FDA-Public Use
  Company Number: US-009507513-1611USA014323

PATIENT
  Sex: Female

DRUGS (3)
  1. ZETIA [Suspect]
     Active Substance: EZETIMIBE
     Indication: BLOOD CHOLESTEROL INCREASED
     Route: 048
  2. ZETIA [Suspect]
     Active Substance: EZETIMIBE
     Indication: BLOOD TRIGLYCERIDES INCREASED
  3. ZOCOR [Suspect]
     Active Substance: SIMVASTATIN
     Route: 048

REACTIONS (2)
  - Cough [Recovered/Resolved]
  - Vomiting [Recovered/Resolved]
